FAERS Safety Report 17626523 (Version 3)
Quarter: 2020Q2

REPORT INFORMATION
  Report Type: Spontaneous
  Country: US (occurrence: US)
  Receive Date: 20200404
  Receipt Date: 20200512
  Transmission Date: 20200713
  Serious: No
  Sender: FDA-Public Use
  Company Number: US-AMGEN-USASP2020054656

PATIENT
  Sex: Female

DRUGS (2)
  1. REPATHA [Suspect]
     Active Substance: EVOLOCUMAB
     Indication: PRODUCT USED FOR UNKNOWN INDICATION
     Dosage: 140 MILLIGRAM PER MILLILITRE
     Route: 065
     Dates: start: 201811
  2. REPATHA [Suspect]
     Active Substance: EVOLOCUMAB
     Dosage: 140 MILLIGRAM PER MILLILITRE
     Route: 065

REACTIONS (5)
  - Wrong technique in product usage process [Unknown]
  - Injection site bruising [Unknown]
  - Device use error [Unknown]
  - Device difficult to use [Recovered/Resolved]
  - Injection site pain [Unknown]
